FAERS Safety Report 8774627 (Version 8)
Quarter: 2013Q4

REPORT INFORMATION
  Report Type: Report from Study
  Country: RU (occurrence: RU)
  Receive Date: 20120907
  Receipt Date: 20131219
  Transmission Date: 20140711
  Serious: Yes (Other)
  Sender: FDA-Public Use
  Company Number: RU-009507513-2012SP031717

PATIENT
  Age: 51 Year
  Sex: Female
  Weight: 67.8 kg

DRUGS (13)
  1. BOCEPREVIR [Suspect]
     Indication: CHRONIC HEPATITIS C
     Dosage: 800 MG, TID
     Route: 048
     Dates: start: 20120327
  2. RIBAVIRIN [Suspect]
     Indication: CHRONIC HEPATITIS C
     Dosage: 600 MG QAM, 400 MG QPM INITIAL DOSE
     Route: 048
     Dates: start: 20120227
  3. RIBAVIRIN [Suspect]
     Dosage: 200 MG QAM, 400 MG QPM
     Route: 048
     Dates: start: 20120518, end: 20120815
  4. RIBAVIRIN [Suspect]
     Dosage: 1000 MG, DAILY
     Route: 048
     Dates: start: 20120815, end: 20121004
  5. RIBAVIRIN [Suspect]
     Dosage: 400 MG, QD
     Route: 048
     Dates: start: 20121004, end: 20121015
  6. RIBAVIRIN [Suspect]
     Dosage: 1000 MG, DAILY
     Route: 048
     Dates: start: 20121015
  7. PEGINTRON [Suspect]
     Indication: CHRONIC HEPATITIS C
     Dosage: 72 MCG,QW
     Route: 058
     Dates: start: 20120507, end: 20120604
  8. PEGINTRON [Suspect]
     Dosage: 120 MICROGRAM, 1 INJECTION QW
     Route: 058
     Dates: start: 20120227
  9. PEGINTRON [Suspect]
     Dosage: 96 MICROGRAM, QW
     Route: 058
     Dates: start: 20120423
  10. PEGINTRON [Suspect]
     Dosage: 96 MCG,QW
     Route: 058
     Dates: start: 20120611, end: 20120618
  11. PEGINTRON [Suspect]
     Dosage: 72 UNK, UNK
     Route: 058
     Dates: start: 20120625, end: 20120820
  12. PEGINTRON [Suspect]
     Dosage: 96 UNK, UNK
     Route: 058
     Dates: start: 20120903, end: 20121001
  13. PEGINTRON [Suspect]
     Dosage: 96 UNK, UNK
     Route: 058
     Dates: start: 20121015

REACTIONS (3)
  - Neutropenia [Recovered/Resolved]
  - Neutropenia [Recovered/Resolved]
  - Neutropenia [Recovered/Resolved]
